FAERS Safety Report 8806820 (Version 1)
Quarter: 2012Q4

REPORT INFORMATION
  Report Type: 
  Country: GB (occurrence: GB)
  Receive Date: 20120925
  Receipt Date: 20120925
  Transmission Date: 20130627
  Serious: Yes (Other)
  Sender: FDA-Public Use
  Company Number: GB-ELI_LILLY_AND_COMPANY-GB201209005249

PATIENT
  Sex: Male

DRUGS (1)
  1. GEMZAR [Suspect]

REACTIONS (2)
  - Thrombotic thrombocytopenic purpura [Unknown]
  - Haemolytic uraemic syndrome [Unknown]
